FAERS Safety Report 11778219 (Version 1)
Quarter: 2015Q4

REPORT INFORMATION
  Report Type: Spontaneous
  Country: US (occurrence: US)
  Receive Date: 20151125
  Receipt Date: 20151125
  Transmission Date: 20160304
  Serious: No
  Sender: FDA-Public Use
  Company Number: US-009507513-1511USA006030

PATIENT
  Age: 21 Year
  Sex: Male

DRUGS (2)
  1. STROMECTOL [Suspect]
     Active Substance: IVERMECTIN
     Indication: ACARODERMATITIS
     Dosage: 8 AND A HALF TABLETS (UNSPECIFIED DOSE)
     Route: 048
     Dates: start: 20151109
  2. XANAX XR [Concomitant]
     Active Substance: ALPRAZOLAM

REACTIONS (3)
  - Drug prescribing error [Unknown]
  - Wrong technique in product usage process [Unknown]
  - Rash [Not Recovered/Not Resolved]

NARRATIVE: CASE EVENT DATE: 201511
